FAERS Safety Report 11267664 (Version 1)
Quarter: 2015Q3

REPORT INFORMATION
  Report Type: Spontaneous
  Country: JP (occurrence: JP)
  Receive Date: 20150713
  Receipt Date: 20150713
  Transmission Date: 20151125
  Serious: Yes (Hospitalization, Other)
  Sender: FDA-Public Use
  Company Number: JP-GLAXOSMITHKLINE-JP2015JPN096501

PATIENT
  Age: 93 Year
  Sex: Female
  Weight: 40 kg

DRUGS (10)
  1. VIDARABINE [Suspect]
     Active Substance: VIDARABINE
     Dosage: 300 MG, UNK
     Route: 041
  2. LASIX [Suspect]
     Active Substance: FUROSEMIDE
     Route: 065
  3. ARTIST [Suspect]
     Active Substance: CARVEDILOL
     Route: 048
  4. TAKEPRON [Suspect]
     Active Substance: LANSOPRAZOLE
     Route: 065
  5. PRIMPERAN [Suspect]
     Active Substance: METOCLOPRAMIDE HYDROCHLORIDE
     Route: 065
  6. VALTREX [Suspect]
     Active Substance: VALACYCLOVIR HYDROCHLORIDE
     Dosage: 500 MG, BID
     Route: 048
  7. VIDARABINE [Suspect]
     Active Substance: VIDARABINE
     Dosage: 300 MG, UNK
     Route: 041
  8. BLOPRESS [Suspect]
     Active Substance: CANDESARTAN CILEXETIL
     Route: 048
  9. ZYLORIC [Suspect]
     Active Substance: ALLOPURINOL
     Route: 048
  10. LIPITOR [Suspect]
     Active Substance: ATORVASTATIN CALCIUM
     Route: 048

REACTIONS (15)
  - Erythema [Unknown]
  - Vomiting [Unknown]
  - Hypometabolism [Unknown]
  - Eyelid oedema [Unknown]
  - Tremor [Unknown]
  - Herpes zoster [Unknown]
  - Blister [Unknown]
  - Cardiac failure congestive [Unknown]
  - Eyelid function disorder [Unknown]
  - Pyrexia [Recovered/Resolved]
  - Drug interaction [Unknown]
  - Toxic encephalopathy [Unknown]
  - Pain [Unknown]
  - Altered state of consciousness [Recovered/Resolved]
  - Feeding disorder [Unknown]
